FAERS Safety Report 8266155-6 (Version None)
Quarter: 2012Q2

REPORT INFORMATION
  Report Type: 
  Country: None (occurrence: None)
  Receive Date: 20120406
  Receipt Date: 20120330
  Transmission Date: 20120825
  Serious: Yes (Other)
  Sender: FDA-Public Use
  Company Number: US-US-EMD SERONO, INC.-7123268

PATIENT
  Sex: Female

DRUGS (1)
  1. REBIF [Suspect]
     Indication: PRODUCT USED FOR UNKNOWN INDICATION
     Route: 058
     Dates: start: 20120116

REACTIONS (5)
  - ROTATOR CUFF SYNDROME [None]
  - FALL [None]
  - MYALGIA [None]
  - COGNITIVE DISORDER [None]
  - SPIDER VEIN [None]
